FAERS Safety Report 6441654-8 (Version None)
Quarter: 2009Q4

REPORT INFORMATION
  Report Type: 
  Country: None (occurrence: None)
  Receive Date: 20091116
  Receipt Date: 20091105
  Transmission Date: 20100525
  Serious: Yes (Hospitalization)
  Sender: FDA-Public Use
  Company Number: FR-ASTRAZENECA-2009SE25265

PATIENT
  Age: 47 Year
  Sex: Male

DRUGS (7)
  1. NEXIUM [Suspect]
     Indication: VARICES OESOPHAGEAL
     Route: 048
  2. AVLOCARDYL [Suspect]
     Indication: VARICES OESOPHAGEAL
     Route: 048
     Dates: start: 20000101
  3. PREVISCAN [Suspect]
     Indication: ESSENTIAL THROMBOCYTHAEMIA
     Route: 048
     Dates: start: 20000101
  4. XAGRID [Suspect]
     Indication: ESSENTIAL THROMBOCYTHAEMIA
     Route: 048
     Dates: start: 20080228
  5. DELURSAN [Suspect]
     Route: 048
     Dates: start: 20030101
  6. DAFALGAN [Suspect]
     Route: 048
  7. TARDYFERON [Suspect]
     Route: 048
     Dates: start: 20000101

REACTIONS (1)
  - TRANSIENT ISCHAEMIC ATTACK [None]
